FAERS Safety Report 12369330 (Version 1)
Quarter: 2016Q2

REPORT INFORMATION
  Report Type: Spontaneous
  Country: US (occurrence: US)
  Receive Date: 20160513
  Receipt Date: 20160513
  Transmission Date: 20160815
  Serious: No
  Sender: FDA-Public Use
  Company Number: US-TEIKOKU PHARMA USA-TPU2016-00227

PATIENT
  Age: 73 Year
  Sex: Female
  Weight: 61.74 kg

DRUGS (1)
  1. LIDOCAINE PATCH [Suspect]
     Active Substance: LIDOCAINE
     Indication: RADIATION ASSOCIATED PAIN
     Dosage: APPLIED TO THE BACK AND UNDER RIGHT BREAST
     Route: 061
     Dates: start: 20160402

REACTIONS (1)
  - Drug ineffective for unapproved indication [Unknown]

NARRATIVE: CASE EVENT DATE: 201604
